APPROVED DRUG PRODUCT: ZANTAC
Active Ingredient: RANITIDINE HYDROCHLORIDE
Strength: EQ 25MG BASE/ML **Federal Register determination that product was not discontinued or withdrawn for safety or effectiveness reasons**
Dosage Form/Route: INJECTABLE;INJECTION
Application: N019090 | Product #001
Applicant: PAI HOLDINGS LLC DBA PHARMACEUTICAL ASSOCIATES INC
Approved: Oct 19, 1984 | RLD: Yes | RS: No | Type: DISCN